FAERS Safety Report 7780178-2 (Version None)
Quarter: 2011Q3

REPORT INFORMATION
  Report Type: 
  Country: None (occurrence: None)
  Receive Date: 20110927
  Receipt Date: 20110927
  Transmission Date: 20111222
  Serious: Yes (Life-Threatening, Other)
  Sender: FDA-Public Use
  Company Number: None

PATIENT
  Age: 30 Year
  Sex: Female
  Weight: 61.234 kg

DRUGS (1)
  1. MIRENA [Suspect]
     Indication: CONTRACEPTION

REACTIONS (16)
  - HAEMORRHAGIC ANAEMIA [None]
  - MYALGIA [None]
  - VOMITING [None]
  - OROPHARYNGEAL SWELLING [None]
  - SYNCOPE [None]
  - OEDEMA MOUTH [None]
  - DYSPNOEA [None]
  - CONFUSIONAL STATE [None]
  - DIZZINESS [None]
  - ALOPECIA [None]
  - DIARRHOEA [None]
  - NAUSEA [None]
  - ARTHRALGIA [None]
  - LIP SWELLING [None]
  - EATING DISORDER [None]
  - MIGRAINE [None]
